FAERS Safety Report 14962761 (Version 1)
Quarter: 2018Q2

REPORT INFORMATION
  Report Type: Spontaneous
  Country: US (occurrence: US)
  Receive Date: 20180510
  Receipt Date: 20180510
  Transmission Date: 20180711
  Serious: Yes (Other)
  Sender: FDA-Public Use
  Company Number: None

PATIENT
  Age: 37 Year
  Sex: Male

DRUGS (1)
  1. VANCOMYCIN 1250MG Q12 FRESENIUS [Suspect]
     Active Substance: VANCOMYCIN
     Indication: ENDOCARDITIS
     Route: 042
     Dates: start: 20180416, end: 20180502

REACTIONS (7)
  - Nausea [None]
  - Tinnitus [None]
  - Vision blurred [None]
  - Night sweats [None]
  - Hypoacusis [None]
  - Arthralgia [None]
  - Dizziness [None]

NARRATIVE: CASE EVENT DATE: 20180502
